FAERS Safety Report 7783172-0 (Version None)
Quarter: 2011Q3

REPORT INFORMATION
  Report Type: 
  Country: None (occurrence: None)
  Receive Date: 20110928
  Receipt Date: 20110921
  Transmission Date: 20111222
  Serious: Yes (Hospitalization)
  Sender: FDA-Public Use
  Company Number: DE-SANOFI-AVENTIS-2011SA059330

PATIENT
  Age: 85 Year
  Sex: Male
  Weight: 61 kg

DRUGS (4)
  1. CLEMASTINE FUMARATE [Concomitant]
     Indication: PREMEDICATION
     Route: 042
     Dates: start: 20110818, end: 20110818
  2. DEXAMETHASONE [Concomitant]
     Indication: PREMEDICATION
     Route: 042
     Dates: start: 20110818, end: 20110818
  3. JEVTANA KIT [Suspect]
     Route: 051
     Dates: start: 20110818, end: 20110818
  4. ONDANSETRON [Concomitant]
     Indication: PREMEDICATION
     Route: 042
     Dates: start: 20110818, end: 20110818

REACTIONS (1)
  - EXTRAPYRAMIDAL DISORDER [None]
